FAERS Safety Report 9062498 (Version 2)
Quarter: 2013Q1

REPORT INFORMATION
  Report Type: Report from Study
  Country: US (occurrence: US)
  Receive Date: 20130213
  Receipt Date: 20130315
  Transmission Date: 20140127
  Serious: Yes (Hospitalization)
  Sender: FDA-Public Use
  Company Number: US-JNJFOC-20130206124

PATIENT
  Age: 5 None
  Sex: Male
  Weight: 17.3 kg

DRUGS (6)
  1. REMICADE [Suspect]
     Indication: INFLAMMATORY BOWEL DISEASE
     Route: 042
     Dates: start: 20111209
  2. AZATHIOPRINE [Suspect]
     Indication: PRODUCT USED FOR UNKNOWN INDICATION
  3. DEXTRIN [Concomitant]
  4. MULTIVIT [Concomitant]
  5. LANSOPRAZOLE [Concomitant]
  6. PROBIOTICS [Concomitant]

REACTIONS (1)
  - Croup infectious [Recovered/Resolved]
